FAERS Safety Report 7897358-8 (Version None)
Quarter: 2011Q4

REPORT INFORMATION
  Report Type: 
  Country: None (occurrence: None)
  Receive Date: 20111107
  Receipt Date: 20111102
  Transmission Date: 20120403
  Serious: Yes (Other)
  Sender: FDA-Public Use
  Company Number: PHEH2011US03383

PATIENT
  Sex: Female
  Weight: 54.422 kg

DRUGS (4)
  1. BIAXIN [Concomitant]
  2. IBUPROFEN (ADVIL) [Concomitant]
     Dosage: UNK UKN, UNK
  3. RECLAST [Suspect]
     Dosage: UNK UKN, UNK
     Route: 042
     Dates: start: 20110420
  4. TYLENOL-500 [Concomitant]
     Dosage: UNK UKN, UNK

REACTIONS (6)
  - CATARACT [None]
  - INFLUENZA LIKE ILLNESS [None]
  - ABSCESS ORAL [None]
  - RASH [None]
  - FACIAL PAIN [None]
  - EAR INFECTION [None]
